FAERS Safety Report 11595337 (Version 1)
Quarter: 2015Q4

REPORT INFORMATION
  Report Type: Spontaneous
  Country: US (occurrence: US)
  Receive Date: 20151006
  Receipt Date: 20151006
  Transmission Date: 20160304
  Serious: Yes (Disabling)
  Sender: FDA-Public Use
  Company Number: US-IPSEN BIOPHARMACEUTICALS, INC.-2015-6858

PATIENT
  Age: 52 Year
  Sex: Female
  Weight: 77 kg

DRUGS (4)
  1. DYSPORT [Suspect]
     Active Substance: ABOBOTULINUMTOXINA
     Indication: SKIN WRINKLING
     Dosage: 100 UNITS
     Route: 065
     Dates: start: 20150516, end: 20150516
  2. DYSPORT [Suspect]
     Active Substance: ABOBOTULINUMTOXINA
     Indication: SKIN WRINKLING
  3. DYSPORT [Suspect]
     Active Substance: ABOBOTULINUMTOXINA
     Indication: SKIN WRINKLING
  4. DYSPORT [Suspect]
     Active Substance: ABOBOTULINUMTOXINA
     Indication: PRODUCT USE ISSUE

REACTIONS (12)
  - Respiratory tract infection [Unknown]
  - Joint swelling [Not Recovered/Not Resolved]
  - Overdose [Unknown]
  - Musculoskeletal stiffness [Recovered/Resolved]
  - Migraine [Unknown]
  - Musculoskeletal stiffness [Recovered/Resolved]
  - Abasia [Not Recovered/Not Resolved]
  - Product preparation error [Unknown]
  - Adverse event [Not Recovered/Not Resolved]
  - Joint stiffness [Not Recovered/Not Resolved]
  - Meniscal degeneration [Unknown]
  - Wrong technique in product usage process [Unknown]

NARRATIVE: CASE EVENT DATE: 2015
